FAERS Safety Report 7629261-2 (Version None)
Quarter: 2011Q3

REPORT INFORMATION
  Report Type: 
  Country: None (occurrence: None)
  Receive Date: 20110722
  Receipt Date: 20110714
  Transmission Date: 20111222
  Serious: Yes (Life-Threatening)
  Sender: FDA-Public Use
  Company Number: FI-PFIZER INC-2011163298

PATIENT
  Age: 55 Year
  Sex: Female

DRUGS (4)
  1. PROPRANOLOL [Suspect]
  2. LEVOTHYROXINE SODIUM [Concomitant]
  3. VARENICLINE TARTRATE [Suspect]
     Dosage: 0.5 MG, 1X/DAY
  4. TELMISARTAN [Concomitant]

REACTIONS (1)
  - PHAEOCHROMOCYTOMA CRISIS [None]
